FAERS Safety Report 7953414-7 (Version None)
Quarter: 2011Q4

REPORT INFORMATION
  Report Type: 
  Country: None (occurrence: None)
  Receive Date: 20111202
  Receipt Date: 20111121
  Transmission Date: 20120403
  Serious: Yes (Hospitalization)
  Sender: FDA-Public Use
  Company Number: US-ELI_LILLY_AND_COMPANY-US201110003371

PATIENT
  Sex: Male
  Weight: 88.435 kg

DRUGS (6)
  1. COGENTIN [Concomitant]
     Dosage: 1 MG, UNKNOWN
     Route: 048
  2. MINOCYCLINE HCL [Concomitant]
     Dosage: 50 MG, BID
     Route: 048
  3. GEODON [Concomitant]
     Dosage: 160 MG, UNKNOWN
     Route: 065
  4. ZYPREXA RELPREVV [Suspect]
     Indication: SCHIZOPHRENIA
     Dosage: UNK, UNKNOWN
     Route: 030
     Dates: start: 20110714
  5. DEPAKOTE [Concomitant]
     Dosage: 1000 MG, UNKNOWN
     Route: 065
  6. RISPERIDONE [Concomitant]
     Dosage: 3 MG, UNKNOWN
     Route: 048

REACTIONS (2)
  - PSYCHOTIC DISORDER [None]
  - AGITATION [None]
